FAERS Safety Report 7576481-1 (Version None)
Quarter: 2011Q2

REPORT INFORMATION
  Report Type: 
  Country: None (occurrence: None)
  Receive Date: 20110628
  Receipt Date: 20110601
  Transmission Date: 20111010
  Serious: Yes (Hospitalization, Other)
  Sender: FDA-Public Use
  Company Number: US-BAYER-201039933NA

PATIENT
  Age: 40 Year
  Sex: Female
  Weight: 110 kg

DRUGS (2)
  1. YAZ [Suspect]
     Indication: ACNE
     Dosage: UNK
     Route: 048
     Dates: start: 20071001, end: 20071021
  2. YAZ [Suspect]
     Indication: MENSTRUATION IRREGULAR

REACTIONS (1)
  - DEEP VEIN THROMBOSIS [None]
